FAERS Safety Report 13323096 (Version 1)
Quarter: 2017Q1

REPORT INFORMATION
  Report Type: Spontaneous
  Country: HK (occurrence: HK)
  Receive Date: 20170310
  Receipt Date: 20170310
  Transmission Date: 20170428
  Serious: Yes (Other)
  Sender: FDA-Public Use
  Company Number: HK-PFIZER INC-2017099127

PATIENT
  Age: 50 Year
  Sex: Female

DRUGS (2)
  1. TRANEXAMIC ACID. [Suspect]
     Active Substance: TRANEXAMIC ACID
     Indication: PROCEDURAL HAEMORRHAGE
     Dosage: 4.5 G, UNK (WIHTIN 12H)
     Route: 042
  2. TRANEXAMIC ACID. [Suspect]
     Active Substance: TRANEXAMIC ACID
     Dosage: 1.5 G, UNK
     Route: 042

REACTIONS (3)
  - Neurotoxicity [Recovered/Resolved]
  - Generalised tonic-clonic seizure [Recovered/Resolved]
  - Muscle twitching [Recovered/Resolved]
